FAERS Safety Report 5214476-3 (Version None)
Quarter: 2006Q4

REPORT INFORMATION
  Report Type: 
  Country: None (occurrence: None)
  Receive Date: 20061107
  Receipt Date: 20060728
  Transmission Date: 20070319
  Serious: No
  Sender: FDA-Public Use
  Company Number: 200614861BWH

PATIENT
  Age: 32 Year
  Sex: Male

DRUGS (2)
  1. LEVITRA [Suspect]
     Indication: ERECTILE DYSFUNCTION
     Dosage: 10 MG,BIW, ORAL; 20 MG, ONCE, ORAL
     Route: 048
     Dates: start: 20060727
  2. ZOLOFT [Concomitant]

REACTIONS (4)
  - DIZZINESS [None]
  - ERECTILE DYSFUNCTION [None]
  - HEADACHE [None]
  - NASAL CONGESTION [None]
